FAERS Safety Report 9992936 (Version 2)
Quarter: 2014Q1

REPORT INFORMATION
  Report Type: Report from Study
  Country: US (occurrence: US)
  Receive Date: 20140310
  Receipt Date: 20140310
  Transmission Date: 20141002
  Serious: No
  Sender: FDA-Public Use
  Company Number: US-ABBVIE-13P-163-1075003-00

PATIENT
  Age: 28 Year
  Sex: Female

DRUGS (6)
  1. LUPRON DEPOT [Suspect]
     Indication: ENDOMETRIOSIS
     Dates: start: 20130320
  2. LOW ESTROGEN SUPPLEMENT [Suspect]
     Indication: PRODUCT USED FOR UNKNOWN INDICATION
     Dates: start: 201304
  3. ESTROGEN SUPPLEMENT [Suspect]
     Indication: PRODUCT USED FOR UNKNOWN INDICATION
     Dosage: DAILY
     Dates: start: 201304
  4. CYMBALTA [Suspect]
     Indication: MOOD SWINGS
     Dates: start: 201305
  5. BENADRYL [Concomitant]
     Indication: PRODUCT USED FOR UNKNOWN INDICATION
  6. NORETHINDRONE ACETATE [Concomitant]
     Indication: PRODUCT USED FOR UNKNOWN INDICATION
     Dates: start: 201303

REACTIONS (10)
  - Migraine [Recovered/Resolved]
  - Menstruation delayed [Unknown]
  - Pelvic pain [Unknown]
  - Pain [Unknown]
  - Mood swings [Not Recovered/Not Resolved]
  - Weight increased [Unknown]
  - Breast enlargement [Unknown]
  - Local swelling [Unknown]
  - Local swelling [Unknown]
  - Drug ineffective [Unknown]
